FAERS Safety Report 24001091 (Version 1)
Quarter: 2024Q2

REPORT INFORMATION
  Report Type: Spontaneous
  Country: GB (occurrence: GB)
  Receive Date: 20240621
  Receipt Date: 20240621
  Transmission Date: 20240715
  Serious: Yes (Life-Threatening, Other)
  Sender: FDA-Public Use
  Company Number: None

PATIENT
  Sex: Female

DRUGS (5)
  1. TRANEXAMIC ACID [Suspect]
     Active Substance: TRANEXAMIC ACID
     Indication: Haemorrhage
     Dosage: 1 G
     Route: 042
     Dates: start: 20240617
  2. EPINEPHRINE\LIDOCAINE [Concomitant]
     Active Substance: EPINEPHRINE\LIDOCAINE
     Indication: Adverse drug reaction
     Dosage: UNK
  3. AMOXICILLIN\CLAVULANATE POTASSIUM [Concomitant]
     Active Substance: AMOXICILLIN\CLAVULANATE POTASSIUM
     Indication: Antibiotic prophylaxis
     Dosage: UNK
  4. ERGOMETRINE MALEATE/OXYTOCIN [Concomitant]
     Dosage: UNK
  5. SYNTOCINON [Concomitant]
     Active Substance: OXYTOCIN
     Dosage: UNK

REACTIONS (4)
  - Anaphylactic reaction [Recovering/Resolving]
  - Hypotension [Unknown]
  - Pharyngeal swelling [Unknown]
  - Pruritus [Unknown]

NARRATIVE: CASE EVENT DATE: 20240617
